FAERS Safety Report 13798493 (Version 2)
Quarter: 2017Q3

REPORT INFORMATION
  Report Type: Report from Study
  Country: AR (occurrence: AR)
  Receive Date: 20170727
  Receipt Date: 20170829
  Transmission Date: 20171127
  Serious: Yes (Other)
  Sender: FDA-Public Use
  Company Number: PHHY2017AR110310

PATIENT
  Sex: Male

DRUGS (1)
  1. DIOVAN [Suspect]
     Active Substance: VALSARTAN
     Indication: BLOOD PRESSURE INCREASED
     Dosage: 160 OT, QD (MORE THAN 2 YEARS AGO)
     Route: 065

REACTIONS (3)
  - Blood cholesterol increased [Unknown]
  - Diabetes mellitus [Recovering/Resolving]
  - Blood glucose increased [Unknown]
